FAERS Safety Report 13013379 (Version 1)
Quarter: 2016Q4

REPORT INFORMATION
  Report Type: Spontaneous
  Country: CH (occurrence: AU)
  Receive Date: 20161209
  Receipt Date: 20161209
  Transmission Date: 20170207
  Serious: Yes (Hospitalization)
  Sender: FDA-Public Use
  Company Number: CH-LPDUSPRD-20161093

PATIENT
  Sex: Female

DRUGS (1)
  1. FERINJECT [Suspect]
     Active Substance: FERRIC CARBOXYMALTOSE
     Dosage: 1000 MG IN 250 ML NS
     Route: 041
     Dates: start: 20161122

REACTIONS (4)
  - Emotional distress [Unknown]
  - Somnolence [Unknown]
  - Wheezing [Unknown]
  - Flushing [Unknown]

NARRATIVE: CASE EVENT DATE: 20161122
